FAERS Safety Report 26072662 (Version 2)
Quarter: 2025Q4

REPORT INFORMATION
  Report Type: Report from Study
  Country: US (occurrence: US)
  Receive Date: 20251120
  Receipt Date: 20251210
  Transmission Date: 20260117
  Serious: Yes (Other)
  Sender: ABBVIE
  Company Number: US-ABBVIE-6554513

PATIENT
  Age: 75 Year
  Sex: Male
  Weight: 70.76 kg

DRUGS (9)
  1. SKYRIZI [Suspect]
     Active Substance: RISANKIZUMAB-RZAA
     Indication: Psoriasis
     Dosage: FORM STRENGTH: 150 MILLIGRAM?SOLUTION FOR INJECTION IN PRE-FILLED PEN
     Route: 058
     Dates: start: 20230717, end: 20230717
  2. SKYRIZI [Suspect]
     Active Substance: RISANKIZUMAB-RZAA
     Dosage: FORM STRENGTH: 150 MILLIGRAM?SOLUTION FOR INJECTION IN PRE-FILLED PEN
     Route: 058
     Dates: start: 202508
  3. METOPROLOL [Concomitant]
     Active Substance: METOPROLOL
     Indication: Hypertension
     Dosage: FORM STRENGTH: 25 MILLIGRAM
     Route: 048
  4. ALPRAZOLAM [Concomitant]
     Active Substance: ALPRAZOLAM
     Indication: Sleep disorder
     Dosage: FORM STRENGTH: 0.25 MILLIGRAM
     Route: 048
  5. ATORVASTATIN [Concomitant]
     Active Substance: ATORVASTATIN
     Indication: Blood cholesterol abnormal
     Dosage: FORM STRENGTH: 20 MILLIGRAM
     Route: 048
  6. METFORMIN [Concomitant]
     Active Substance: METFORMIN HYDROCHLORIDE
     Indication: Diabetes mellitus
     Dosage: FORM STRENGTH: 500 MILLIGRAM
     Route: 048
  7. ESCITALOPRAM [Concomitant]
     Active Substance: ESCITALOPRAM OXALATE
     Indication: Craniocerebral injury
     Dosage: FORM STRENGTH: 10 MILLIGRAM
     Route: 048
  8. NEMLUVIO [Concomitant]
     Active Substance: NEMOLIZUMAB-ILTO
     Indication: Eczema
  9. LOSARTAN [Concomitant]
     Active Substance: LOSARTAN
     Indication: Hypertension
     Dosage: FORM STRENGTH: 50 MILLIGRAM
     Route: 048

REACTIONS (1)
  - Lung neoplasm malignant [Recovered/Resolved]

NARRATIVE: CASE EVENT DATE: 20240801
